FAERS Safety Report 17668626 (Version 2)
Quarter: 2020Q3

REPORT INFORMATION
  Report Type: Spontaneous
  Country: US (occurrence: US)
  Receive Date: 20200415
  Receipt Date: 20200812
  Transmission Date: 20201102
  Serious: Yes (Death, Life-Threatening, Hospitalization, Other)
  Sender: FDA-Public Use
  Company Number: US-DRREDDYS-USA/USA/20/0121933

PATIENT
  Age: 46 Year
  Sex: Male

DRUGS (1)
  1. HEPARIN SODIUM. [Suspect]
     Active Substance: HEPARIN SODIUM
     Indication: ANTICOAGULANT THERAPY
     Dosage: HEPARIN DRIP, BOLUS

REACTIONS (5)
  - Cardiac arrest [Fatal]
  - Thrombosis [Fatal]
  - Drug ineffective [Fatal]
  - Syncope [Recovered/Resolved]
  - Pulmonary embolism [Fatal]
